FAERS Safety Report 4555171-3 (Version None)
Quarter: 2005Q1

REPORT INFORMATION
  Report Type: 
  Country: None (occurrence: None)
  Receive Date: 20041228
  Receipt Date: 20040723
  Transmission Date: 20050727
  Serious: Yes (Other)
  Sender: FDA-Public Use
  Company Number: PHEH2004US07984

PATIENT
  Age: 67 Year
  Sex: Female

DRUGS (5)
  1. AREDIA [Suspect]
     Indication: OSTEOGENESIS IMPERFECTA
     Dosage: 90 MG, QD
     Dates: start: 20040706
  2. VALIUM [Concomitant]
  3. METHADONE (METHADONE) [Concomitant]
  4. DURAGESIC [Concomitant]
  5. AMLODIPINE BESYLATE [Concomitant]

REACTIONS (6)
  - ATRIAL FIBRILLATION [None]
  - BLOOD PRESSURE INCREASED [None]
  - CHILLS [None]
  - HEART RATE INCREASED [None]
  - HYPERTENSION [None]
  - TACHYCARDIA [None]
